FAERS Safety Report 5482353-9 (Version None)
Quarter: 2007Q4

REPORT INFORMATION
  Report Type: 
  Country: None (occurrence: None)
  Receive Date: 20071011
  Receipt Date: 20071008
  Transmission Date: 20080405
  Serious: Yes (Other)
  Sender: FDA-Public Use
  Company Number: A0684456A

PATIENT
  Age: 87 Year
  Sex: Male

DRUGS (1)
  1. AVODART [Suspect]
     Indication: DRUG USE FOR UNKNOWN INDICATION
     Route: 048
     Dates: start: 20050101, end: 20070101

REACTIONS (3)
  - COMMUNICATION DISORDER [None]
  - DEMENTIA [None]
  - DEMENTIA ALZHEIMER'S TYPE [None]
